FAERS Safety Report 22132071 (Version 2)
Quarter: 2024Q4

REPORT INFORMATION
  Report Type: Other
  Country: ES (occurrence: ES)
  Receive Date: 20230323
  Receipt Date: 20241227
  Transmission Date: 20250115
  Serious: Yes (Other)
  Sender: EMD SERONO INC
  Company Number: ES-FERRINGPH-2019FE03579

PATIENT
  Age: 4 Decade
  Sex: Female

DRUGS (3)
  1. FOLLITROPIN ALFA [Suspect]
     Active Substance: FOLLITROPIN ALFA
     Indication: In vitro fertilisation
     Dosage: UNK
  2. MENOTROPINS [Suspect]
     Active Substance: MENOTROPINS
     Indication: In vitro fertilisation
     Dosage: POWDER AND SOLVENT FOR SOLUTION FOR INJECTION
  3. TRIPTORELIN ACETATE [Suspect]
     Active Substance: TRIPTORELIN ACETATE
     Indication: In vitro fertilisation
     Dosage: UNKNOWN

REACTIONS (1)
  - Choroidal neovascularisation [Recovering/Resolving]
